FAERS Safety Report 4414118-0 (Version None)
Quarter: 2004Q3

REPORT INFORMATION
  Report Type: 
  Country: None (occurrence: None)
  Receive Date: 20040803
  Receipt Date: 20040702
  Transmission Date: 20050211
  Serious: Yes (Congenital Anomaly)
  Sender: FDA-Public Use
  Company Number: US-BRISTOL-MYERS SQUIBB COMPANY-12633269

PATIENT
  Age: 1 Month
  Sex: Male
  Weight: 34 kg

DRUGS (1)
  1. ABILIFY [Suspect]
     Route: 064
     Dates: end: 20031211

REACTIONS (5)
  - CAESAREAN SECTION [None]
  - DRUG EXPOSURE DURING PREGNANCY [None]
  - NEONATAL DISORDER [None]
  - SYNOSTOSIS [None]
  - TWIN PREGNANCY [None]
